FAERS Safety Report 25442049 (Version 1)
Quarter: 2025Q2

REPORT INFORMATION
  Report Type: Spontaneous
  Country: US (occurrence: US)
  Receive Date: 20250616
  Receipt Date: 20250616
  Transmission Date: 20250716
  Serious: Yes (Other)
  Sender: ASTELLAS
  Company Number: US-ASTELLAS-2025-AER-030998

PATIENT
  Age: 77 Year
  Sex: Male

DRUGS (2)
  1. XTANDI [Suspect]
     Active Substance: ENZALUTAMIDE
     Indication: Prostate cancer metastatic
     Route: 065
     Dates: start: 20200211
  2. CAMCEVI [Concomitant]
     Active Substance: LEUPROLIDE MESYLATE
     Indication: Product used for unknown indication
     Route: 065

REACTIONS (7)
  - Bladder stenosis [Recovering/Resolving]
  - Radiation injury [Recovering/Resolving]
  - Body dysmorphic disorder [Recovering/Resolving]
  - Nocturia [Recovering/Resolving]
  - Quality of life decreased [Recovering/Resolving]
  - Fatigue [Recovering/Resolving]
  - Lung disorder [Recovering/Resolving]
